FAERS Safety Report 7880063-1 (Version None)
Quarter: 2011Q4

REPORT INFORMATION
  Report Type: 
  Country: None (occurrence: None)
  Receive Date: 20111101
  Receipt Date: 20111019
  Transmission Date: 20120403
  Serious: Yes (Other)
  Sender: FDA-Public Use
  Company Number: JP-ROCHE-745979

PATIENT
  Sex: Female
  Weight: 54 kg

DRUGS (27)
  1. FLUOROURACIL [Concomitant]
     Dosage: ROUTE: INTRAVENOUS BOLUS
     Route: 040
     Dates: start: 20081126, end: 20081126
  2. FLUOROURACIL [Concomitant]
     Dosage: ROUTE: INTRAVENOUS DRIP
     Route: 040
  3. FLUOROURACIL [Concomitant]
     Dosage: ROUTE: INTRAVENOUS DRIP
     Route: 040
     Dates: start: 20081210, end: 20081201
  4. OXALIPLATIN [Concomitant]
     Route: 041
     Dates: start: 20081210, end: 20081210
  5. AVASTIN [Suspect]
     Dosage: DOSAGE IS UNCERTAIN.
     Route: 041
  6. DECADRON [Suspect]
     Indication: PRODUCT USED FOR UNKNOWN INDICATION
     Dosage: DURATION: 362 DAY(S)
     Route: 042
     Dates: start: 20090302, end: 20100226
  7. FLUOROURACIL [Concomitant]
     Dosage: ROUTE: INTRAVENOUS BOLUS
     Route: 040
     Dates: start: 20081210, end: 20081210
  8. FLUOROURACIL [Concomitant]
     Dosage: DOSAGE IS UNCERTAIN.
     Route: 040
  9. FAMOTIDINE [Concomitant]
     Route: 048
  10. AVASTIN [Suspect]
     Indication: COLON CANCER METASTATIC
     Route: 041
     Dates: start: 20081126, end: 20081126
  11. ISOVORIN [Concomitant]
     Route: 041
     Dates: start: 20081210, end: 20081210
  12. ISOVORIN [Concomitant]
     Route: 041
     Dates: start: 20090302, end: 20091009
  13. FLUOROURACIL [Concomitant]
     Dosage: ROUTE: INTRAVENOUS BOLUS
     Route: 040
     Dates: start: 20090302, end: 20091009
  14. OXALIPLATIN [Concomitant]
     Route: 041
     Dates: start: 20081126, end: 20081126
  15. OXYCONTIN [Concomitant]
     Route: 048
  16. IRINOTECAN HCL [Concomitant]
     Route: 041
  17. ISOVORIN [Concomitant]
     Dosage: DOSAGE IS UNCERTAIN.
     Route: 041
  18. ALPRAZOLAM [Concomitant]
     Route: 048
  19. AVASTIN [Suspect]
     Route: 041
     Dates: start: 20081210, end: 20081210
  20. DICLOFENAC SODIUM [Suspect]
     Indication: PRODUCT USED FOR UNKNOWN INDICATION
     Route: 048
  21. FLUOROURACIL [Concomitant]
     Dosage: ROUTE: INTRAVENOUS DRIP
     Route: 040
     Dates: start: 20090302, end: 20091001
  22. OXALIPLATIN [Concomitant]
     Route: 041
     Dates: start: 20090302, end: 20091009
  23. KYTRIL [Concomitant]
     Route: 042
     Dates: start: 20090302, end: 20100226
  24. ISOVORIN [Concomitant]
     Route: 041
     Dates: start: 20081126, end: 20081126
  25. AVASTIN [Suspect]
     Route: 041
     Dates: start: 20090302, end: 20091009
  26. FLUOROURACIL [Concomitant]
     Dosage: DOSAGE IS UNCERTAIN, INTRAVENOUS DRIP
     Route: 040
  27. PURSENNID [Concomitant]
     Route: 048

REACTIONS (2)
  - STOMATITIS [None]
  - OSTEONECROSIS OF JAW [None]
